FAERS Safety Report 5350364-X (Version None)
Quarter: 2007Q2

REPORT INFORMATION
  Report Type: 
  Country: None (occurrence: None)
  Receive Date: 20070605
  Receipt Date: 20070605
  Transmission Date: 20071010
  Serious: Yes (Other)
  Sender: FDA-Public Use
  Company Number: None

PATIENT
  Age: 11 Year
  Sex: Male
  Weight: 40.8237 kg

DRUGS (1)
  1. PROVENTIL-HFA [Suspect]
     Indication: ASTHMA
     Dosage: 2 INHALATIONS Q4HRS PO AS NEEDED
     Route: 048
     Dates: start: 20060401, end: 20070604

REACTIONS (4)
  - COUGH [None]
  - DEVICE MALFUNCTION [None]
  - DRUG INEFFECTIVE [None]
  - MEDICATION ERROR [None]
